FAERS Safety Report 5567006-0 (Version None)
Quarter: 2007Q4

REPORT INFORMATION
  Report Type: 
  Country: None (occurrence: None)
  Receive Date: 20071218
  Receipt Date: 20071218
  Transmission Date: 20080405
  Serious: No
  Sender: FDA-Public Use
  Company Number: None

PATIENT
  Age: 18 Year
  Sex: Male
  Weight: 58.9676 kg

DRUGS (3)
  1. QUETIAPINE [Suspect]
     Dosage: 700MG PO
     Route: 048
  2. CLONAZEPAM [Concomitant]
  3. DEPAKOTE ER [Concomitant]

REACTIONS (1)
  - SPONTANEOUS PENILE ERECTION [None]
